FAERS Safety Report 15857475 (Version 3)
Quarter: 2019Q1

REPORT INFORMATION
  Report Type: Spontaneous
  Country: JP (occurrence: JP)
  Receive Date: 20190123
  Receipt Date: 20190315
  Transmission Date: 20190417
  Serious: Yes (Death, Other)
  Sender: FDA-Public Use
  Company Number: JP-KYOWAKIRIN-2018AKK001274AA

PATIENT

DRUGS (18)
  1. HARTMANN                           /03352501/ [Concomitant]
     Dosage: UNK
     Route: 065
     Dates: start: 20180501
  2. CLARITH [Concomitant]
     Active Substance: CLARITHROMYCIN
     Dosage: 400 MG DIVIDED INTO 2 DOSES
     Route: 048
  3. DEXART [Concomitant]
     Active Substance: DEXAMETHASONE SODIUM PHOSPHATE
     Dosage: UNK
     Route: 065
     Dates: start: 20180501
  4. REBAMIPIDE [Concomitant]
     Active Substance: REBAMIPIDE
     Dosage: 300 MG DIVIDED INTO 3 DOSES
     Route: 048
  5. BLOSTAR M [Concomitant]
     Dosage: 20 MG, QD, BEFORE GOING TO BED
     Route: 048
  6. POTELIGEO [Suspect]
     Active Substance: MOGAMULIZUMAB-KPKC
     Indication: ADULT T-CELL LYMPHOMA/LEUKAEMIA
     Dosage: 20 MG, QD
     Route: 041
     Dates: start: 20180501, end: 20180501
  7. SAXIZON [Concomitant]
     Active Substance: HYDROCORTISONE SODIUM SUCCINATE
     Indication: INFUSION RELATED REACTION
     Dosage: 100 MG
     Route: 065
     Dates: start: 20180501
  8. SENNOSIDE                          /00571901/ [Concomitant]
     Active Substance: SENNOSIDES A AND B
     Dosage: 24 MG, QD, BEFORE GOING TO BED
     Route: 048
  9. ATARAX-P                           /00058402/ [Concomitant]
     Active Substance: HYDROXYZINE HYDROCHLORIDE
     Dosage: UNK
     Route: 065
     Dates: start: 20180501
  10. SOLDEM 3A [Concomitant]
     Active Substance: CARBOHYDRATES\POTASSIUM CHLORIDE\SODIUM CHLORIDE\SODIUM LACTATE
     Dosage: UNK
     Route: 065
     Dates: start: 20180502, end: 20180506
  11. MEDICON                            /00048102/ [Concomitant]
     Active Substance: DEXTROMETHORPHAN HYDROBROMIDE
     Dosage: 45 MG DIVIDED INTO 3 DOSES
     Route: 048
  12. MAGMITT [Concomitant]
     Active Substance: MAGNESIUM OXIDE
     Dosage: 1320 MG DIVIDED INTO 2 DOSES
     Route: 048
  13. MUCOSOLVAN L [Concomitant]
     Active Substance: AMBROXOL HYDROCHLORIDE
     Dosage: 45 MG, QD, BEFORE GOING TO BED
     Route: 048
  14. BERIZYM                            /01945301/ [Concomitant]
     Dosage: 3 G, DIVIDED INTO 3 DOSES
     Route: 048
  15. CALONAL [Concomitant]
     Active Substance: ACETAMINOPHEN
     Dosage: 1200 MG DIVIDED INTO 3 DOSES
     Route: 048
  16. SOLYUGEN F [Concomitant]
     Dosage: UNK
     Route: 065
     Dates: start: 20180507, end: 20180508
  17. ZITHROMAC [Concomitant]
     Active Substance: AZITHROMYCIN DIHYDRATE
     Dosage: 250 MG, QD, AFTER BREAKFAST, TUESDAY, THURSDAY, SATURDAY
     Route: 048
  18. VEMLIDY [Concomitant]
     Active Substance: TENOFOVIR ALAFENAMIDE FUMARATE
     Dosage: 25 MG, QD, AFTER BREAKFAST
     Route: 048

REACTIONS (3)
  - Pneumonia [Fatal]
  - Inappropriate antidiuretic hormone secretion [Recovering/Resolving]
  - Infusion related reaction [Recovered/Resolved]

NARRATIVE: CASE EVENT DATE: 20180501
